FAERS Safety Report 19449030 (Version 1)
Quarter: 2021Q2

REPORT INFORMATION
  Report Type: Report from Study
  Country: IT (occurrence: IT)
  Receive Date: 20210622
  Receipt Date: 20210622
  Transmission Date: 20210717
  Serious: Yes (Death, Life-Threatening)
  Sender: FDA-Public Use
  Company Number: IT-MYLANLABS-2021M1035570

PATIENT
  Age: 73 Year
  Sex: Male
  Weight: 70 kg

DRUGS (5)
  1. QUETIAPINE. [Suspect]
     Active Substance: QUETIAPINE
     Indication: PRODUCT USED FOR UNKNOWN INDICATION
     Dosage: 50 MILLIGRAM, QD
     Route: 048
     Dates: start: 20201224, end: 20201229
  2. DEXMEDETOMIDINE. [Suspect]
     Active Substance: DEXMEDETOMIDINE
     Indication: SEDATION
     Dosage: 16 MICROGRAM/KILOGRAM, QD
     Route: 041
     Dates: start: 20201130, end: 20201225
  3. MEROPENEM. [Suspect]
     Active Substance: MEROPENEM
     Indication: INFECTION
     Dosage: 3 GRAM, QD
     Route: 042
     Dates: start: 20201224, end: 20201229
  4. FLUCONAZOLE. [Suspect]
     Active Substance: FLUCONAZOLE
     Indication: FUNGAL INFECTION
     Dosage: 400 MILLIGRAM, QD
     Route: 042
     Dates: start: 20201227, end: 20201229
  5. VANCOMYCIN [Suspect]
     Active Substance: VANCOMYCIN
     Indication: INFECTION
     Dosage: 2 GRAM, QD
     Route: 040
     Dates: start: 20201226, end: 20201229

REACTIONS (3)
  - Macule [Fatal]
  - Epidermolysis bullosa [Fatal]
  - Erythema [Fatal]

NARRATIVE: CASE EVENT DATE: 20201229
